FAERS Safety Report 19397418 (Version 6)
Quarter: 2022Q4

REPORT INFORMATION
  Report Type: Other
  Country: JP (occurrence: JP)
  Receive Date: 20210610
  Receipt Date: 20221010
  Transmission Date: 20230113
  Serious: Yes (Other)
  Sender: FDA-Public Use
  Company Number: JP-CHUGAI-2021001900AA

PATIENT
  Age: 22 Year
  Sex: Female
  Weight: 53.6 kg

DRUGS (16)
  1. MYCOPHENOLATE MOFETIL [Suspect]
     Active Substance: MYCOPHENOLATE MOFETIL
     Indication: Prophylaxis against transplant rejection
     Dosage: 1000 MG/DAY
     Route: 048
     Dates: start: 20190525, end: 20190707
  2. MYCOPHENOLATE MOFETIL [Suspect]
     Active Substance: MYCOPHENOLATE MOFETIL
     Dosage: 500MG/DAY?MOST RECENT DOSE PRIOR TO AE 15/JUL/2019
     Route: 048
     Dates: start: 20190708
  3. MYCOPHENOLATE MOFETIL [Suspect]
     Active Substance: MYCOPHENOLATE MOFETIL
     Dosage: 1000 MG/DAY
     Route: 048
     Dates: start: 20190519, end: 20190523
  4. RITUXIMAB [Suspect]
     Active Substance: RITUXIMAB
     Indication: Prophylaxis against transplant rejection
     Dosage: 500MG/BODY, SINGLE?MOST RECENT DOSE PRIOR TO AE 10/MAY/2019
     Route: 041
     Dates: start: 20190510
  5. TACROLIMUS [Suspect]
     Active Substance: TACROLIMUS
     Indication: Liver transplant rejection
     Dosage: UNK
     Route: 042
     Dates: start: 20190525, end: 20190607
  6. TACROLIMUS [Suspect]
     Active Substance: TACROLIMUS
     Indication: Prophylaxis against transplant rejection
     Dosage: 1 MILLIGRAM, BID
     Route: 048
     Dates: start: 20190726
  7. TACROLIMUS [Suspect]
     Active Substance: TACROLIMUS
     Dosage: 2MG PER DAY
     Route: 048
     Dates: start: 20190518, end: 20190523
  8. METHYLPREDNISOLONE SODIUM SUCCINATE [Concomitant]
     Active Substance: METHYLPREDNISOLONE SODIUM SUCCINATE
     Indication: Liver transplant rejection
     Dosage: 125MG/DAY
     Route: 042
     Dates: start: 20190525, end: 20190531
  9. METHYLPREDNISOLONE SODIUM SUCCINATE [Concomitant]
     Active Substance: METHYLPREDNISOLONE SODIUM SUCCINATE
     Dosage: 62.5MG/DAY
     Route: 042
     Dates: start: 20190601, end: 20190603
  10. METHYLPREDNISOLONE SODIUM SUCCINATE [Concomitant]
     Active Substance: METHYLPREDNISOLONE SODIUM SUCCINATE
     Dosage: 30MG/DAY
     Route: 042
     Dates: start: 20190604, end: 20190606
  11. PREDONINE [Concomitant]
     Active Substance: PREDNISOLONE
     Indication: Liver transplant rejection
     Dosage: 15MG/DAY
     Route: 048
     Dates: start: 20190607, end: 20190613
  12. PREDONINE [Concomitant]
     Active Substance: PREDNISOLONE
     Dosage: 10MG/DAY
     Route: 048
     Dates: start: 20190614, end: 20190620
  13. PREDONINE [Concomitant]
     Active Substance: PREDNISOLONE
     Dosage: 5MG/DAY
     Route: 048
     Dates: start: 20190621, end: 20190819
  14. PREDONINE [Concomitant]
     Active Substance: PREDNISOLONE
     Dosage: 1000MG/DAY
     Route: 042
     Dates: start: 20190529, end: 20190531
  15. PREDONINE [Concomitant]
     Active Substance: PREDNISOLONE
     Dosage: 1000MG/DAY
     Route: 042
     Dates: start: 20190603, end: 20190603
  16. MEROPENEM [Concomitant]
     Active Substance: MEROPENEM
     Indication: Cholangitis
     Dosage: 0.5 GRAM/DAY
     Route: 042
     Dates: start: 20190422, end: 20190523

REACTIONS (2)
  - Cholangitis [Recovered/Resolved]
  - Enterococcal infection [Unknown]

NARRATIVE: CASE EVENT DATE: 20190621
